FAERS Safety Report 4830739-5 (Version None)
Quarter: 2005Q4

REPORT INFORMATION
  Report Type: 
  Country: None (occurrence: None)
  Receive Date: 20051117
  Receipt Date: 20050916
  Transmission Date: 20060501
  Serious: Yes (Hospitalization, Disabling, Other)
  Sender: FDA-Public Use
  Company Number: US-MERCK-0509USA02737

PATIENT
  Age: 50 Year
  Sex: Female
  Weight: 125 kg

DRUGS (23)
  1. VIOXX [Suspect]
     Indication: BACK PAIN
     Route: 048
     Dates: start: 20020301, end: 20040630
  2. VIOXX [Suspect]
     Route: 048
     Dates: start: 20020301, end: 20040630
  3. CELEXA [Concomitant]
     Route: 065
  4. ELAVIL [Suspect]
     Indication: INSOMNIA
     Route: 048
     Dates: start: 20000101, end: 20040323
  5. PROTONIX [Concomitant]
     Route: 065
  6. NEURONTIN [Concomitant]
     Route: 065
  7. THYROID [Concomitant]
     Route: 065
  8. LORATADINE [Concomitant]
     Indication: HYPERSENSITIVITY
     Route: 065
  9. ESTRACE [Concomitant]
     Indication: OESTROGEN REPLACEMENT THERAPY
     Route: 065
     Dates: end: 20020906
  10. ETODOLAC [Concomitant]
     Indication: BACK PAIN
     Route: 065
  11. FUROSEMIDE [Concomitant]
     Indication: OESTROGEN REPLACEMENT THERAPY
     Route: 065
  12. DICLOFENAC [Concomitant]
     Indication: BACK PAIN
     Route: 065
  13. CARISOPRODOL [Concomitant]
     Indication: BACK PAIN
     Route: 065
  14. ALLEGRA [Concomitant]
     Indication: HYPERSENSITIVITY
     Route: 065
  15. BUSPAR [Concomitant]
     Indication: DEPRESSION
     Route: 065
  16. BUSPAR [Concomitant]
     Indication: ANXIETY
     Route: 065
  17. FAMVIR [Concomitant]
     Indication: INFECTION
     Route: 065
  18. VALTREX [Concomitant]
     Indication: INFECTION
     Route: 065
  19. VICOPROFEN [Concomitant]
     Indication: BACK PAIN
     Route: 065
  20. RHINOCORT [Concomitant]
     Indication: HYPERSENSITIVITY
     Route: 065
  21. NASONEX [Concomitant]
     Indication: HYPERSENSITIVITY
     Route: 065
  22. CEFTIN [Concomitant]
     Indication: INFECTION
     Route: 065
  23. PREDNISONE [Concomitant]
     Indication: BACK PAIN
     Route: 065

REACTIONS (21)
  - BACK PAIN [None]
  - BLOOD CHOLESTEROL INCREASED [None]
  - CONSTIPATION [None]
  - DEEP VEIN THROMBOSIS [None]
  - DIVERTICULUM DUODENAL [None]
  - DYSTHYMIC DISORDER [None]
  - FATIGUE [None]
  - FIBROMYALGIA [None]
  - GASTROOESOPHAGEAL REFLUX DISEASE [None]
  - HAEMATOCHEZIA [None]
  - HERPES SIMPLEX [None]
  - HIATUS HERNIA [None]
  - HYPERTHYROIDISM [None]
  - HYPOTHYROIDISM [None]
  - INSOMNIA [None]
  - MORTON'S NEUROMA [None]
  - MYOCARDIAL INFARCTION [None]
  - OVERDOSE [None]
  - PULMONARY EMBOLISM [None]
  - STRESS [None]
  - URINARY INCONTINENCE [None]
